FAERS Safety Report 16028903 (Version 1)
Quarter: 2019Q2

REPORT INFORMATION
  Report Type: Spontaneous
  Country: US (occurrence: US)
  Receive Date: 20190301
  Receipt Date: 20190301
  Transmission Date: 20190711
  Serious: No
  Sender: FDA-Public Use
  Company Number: None

PATIENT
  Age: 69 Year
  Sex: Male
  Weight: 105.75 kg

DRUGS (9)
  1. ALLOPURINOL. [Concomitant]
     Active Substance: ALLOPURINOL
  2. DABIGATRAN [Concomitant]
     Active Substance: DABIGATRAN
  3. MULTI-VITAMIN [Concomitant]
     Active Substance: .ALPHA.-TOCOPHEROL ACETATE, DL-\ASCORBIC ACID\CYANOCOBALAMIN\FLUORIDE ION\FOLIC ACID\NIACIN\PYRIDOXINE\RIBOFLAVIN\THIAMINE\VITAMIN A\VITAMIN D
  4. AMLODIPINE [Concomitant]
     Active Substance: AMLODIPINE BESYLATE
  5. SOTALOL. [Concomitant]
     Active Substance: SOTALOL
  6. ROSUVASTATIN CALCIUM. [Suspect]
     Active Substance: ROSUVASTATIN CALCIUM
     Indication: ARTERIOSCLEROSIS
     Dosage: ?          QUANTITY:1 TABLET(S);?
     Route: 048
     Dates: start: 20180212, end: 20190211
  7. LOSARTAN. [Concomitant]
     Active Substance: LOSARTAN
  8. HYDOCHLOROTHIAZIDE [Concomitant]
  9. VITAMIN-D [Concomitant]
     Active Substance: VITAMIN D NOS

REACTIONS (7)
  - Asthenia [None]
  - Grip strength decreased [None]
  - Arthralgia [None]
  - Decreased appetite [None]
  - Myalgia [None]
  - Muscle spasms [None]
  - Weight decreased [None]

NARRATIVE: CASE EVENT DATE: 20181219
